FAERS Safety Report 10622171 (Version 1)
Quarter: 2014Q4

REPORT INFORMATION
  Report Type: Spontaneous
  Country: US (occurrence: None)
  Receive Date: 20141202
  Receipt Date: 20141202
  Transmission Date: 20150529
  Serious: Yes (Death, Hospitalization)
  Sender: FDA-Public Use
  Company Number: None

PATIENT
  Age: 73 Year
  Sex: Male
  Weight: 62.5 kg

DRUGS (4)
  1. CARBOPLATIN. [Suspect]
     Active Substance: CARBOPLATIN
  2. TAXOL [Concomitant]
     Active Substance: PACLITAXEL
  3. ELOXATIN [Suspect]
     Active Substance: OXALIPLATIN
  4. 5-FLUOROURACIL (5-FU) [Suspect]
     Active Substance: FLUOROURACIL

REACTIONS (12)
  - Supraventricular tachycardia [None]
  - Dyspnoea [None]
  - Productive cough [None]
  - Blood pressure decreased [None]
  - Pneumonia [None]
  - Pulmonary embolism [None]
  - Tracheo-oesophageal fistula [None]
  - Septic shock [None]
  - Atrial fibrillation [None]
  - Pulmonary oedema [None]
  - Respiratory failure [None]
  - Pleural effusion [None]

NARRATIVE: CASE EVENT DATE: 20141115
